FAERS Safety Report 7444270-4 (Version None)
Quarter: 2011Q2

REPORT INFORMATION
  Report Type: 
  Country: None (occurrence: None)
  Receive Date: 20110420
  Receipt Date: 20110407
  Transmission Date: 20111010
  Serious: Yes (Hospitalization, Disabling, Other)
  Sender: FDA-Public Use
  Company Number: 2011MA004006

PATIENT
  Sex: Female

DRUGS (1)
  1. METOCLOPRAMIDE [Suspect]
     Indication: GASTROINTESTINAL DISORDER
     Dates: start: 20060101, end: 20090101

REACTIONS (12)
  - QUALITY OF LIFE DECREASED [None]
  - EMOTIONAL DISORDER [None]
  - ANHEDONIA [None]
  - ACTIVITIES OF DAILY LIVING IMPAIRED [None]
  - TARDIVE DYSKINESIA [None]
  - MULTIPLE INJURIES [None]
  - ECONOMIC PROBLEM [None]
  - PAIN [None]
  - MENTAL DISORDER [None]
  - NERVOUS SYSTEM DISORDER [None]
  - ANXIETY [None]
  - EXTRAPYRAMIDAL DISORDER [None]
